FAERS Safety Report 14220590 (Version 1)
Quarter: 2017Q4

REPORT INFORMATION
  Report Type: Spontaneous
  Country: JP (occurrence: JP)
  Receive Date: 20171124
  Receipt Date: 20171124
  Transmission Date: 20180321
  Serious: Yes (Other)
  Sender: FDA-Public Use
  Company Number: PHJP2017JP033793

PATIENT
  Age: 75 Year
  Sex: Female

DRUGS (4)
  1. IMATINIB [Suspect]
     Active Substance: IMATINIB
     Indication: CHRONIC MYELOID LEUKAEMIA
     Dosage: UNK
     Route: 048
  2. IMATINIB [Suspect]
     Active Substance: IMATINIB
     Dosage: UNK
     Route: 048
  3. UFT [Suspect]
     Active Substance: TEGAFUR\URACIL
     Indication: RECTAL CANCER STAGE III
     Dosage: UNK
     Route: 065
     Dates: start: 201501
  4. UZEL [Suspect]
     Active Substance: LEUCOVORIN CALCIUM
     Indication: RECTAL CANCER STAGE III
     Dosage: UNK
     Route: 065
     Dates: start: 201501

REACTIONS (2)
  - Bone marrow failure [Unknown]
  - Pancytopenia [Unknown]
